FAERS Safety Report 16960578 (Version 4)
Quarter: 2019Q4

REPORT INFORMATION
  Report Type: Report from Study
  Country: US (occurrence: US)
  Receive Date: 20191025
  Receipt Date: 20191128
  Transmission Date: 20200122
  Serious: Yes (Hospitalization)
  Sender: FDA-Public Use
  Company Number: US-GLAXOSMITHKLINE-US2019TSO177526

PATIENT
  Sex: Male

DRUGS (3)
  1. ROLAPITANT HYDROCHLORIDE [Suspect]
     Active Substance: ROLAPITANT
     Indication: PRODUCT USED FOR UNKNOWN INDICATION
     Dosage: 180 MG, EVERY 2 WEEKS
     Dates: start: 20190916
  2. ROLAPITANT HYDROCHLORIDE [Suspect]
     Active Substance: ROLAPITANT
     Dosage: 180 MG EVERY TWO WEEKS
     Dates: start: 20191102
  3. XPOVIO [Suspect]
     Active Substance: SELINEXOR
     Indication: PRODUCT USED FOR UNKNOWN INDICATION
     Dosage: 80 MG, ONCE WEEKLY
     Dates: start: 20190916

REACTIONS (11)
  - White blood cell count decreased [Recovering/Resolving]
  - Hospitalisation [Unknown]
  - Weight decreased [Recovering/Resolving]
  - Diarrhoea [Recovered/Resolved]
  - Fatigue [Unknown]
  - Decreased appetite [Recovering/Resolving]
  - Haemoglobin decreased [Recovering/Resolving]
  - Adverse drug reaction [Unknown]
  - Red blood cell count decreased [Recovering/Resolving]
  - Platelet count decreased [Recovering/Resolving]
  - Muscular weakness [Unknown]

NARRATIVE: CASE EVENT DATE: 201909
